FAERS Safety Report 11348868 (Version 2)
Quarter: 2015Q3

REPORT INFORMATION
  Report Type: Report from Study
  Country: US (occurrence: US)
  Receive Date: 20150806
  Receipt Date: 20150825
  Transmission Date: 20151125
  Serious: Yes (Other)
  Sender: FDA-Public Use
  Company Number: PHEH2015US014818

PATIENT
  Sex: Female
  Weight: 81.63 kg

DRUGS (1)
  1. GILENYA [Suspect]
     Active Substance: FINGOLIMOD HYDROCHLORIDE
     Indication: MULTIPLE SCLEROSIS
     Dosage: 0.5 MG, QD
     Route: 048
     Dates: start: 20150430, end: 20150804

REACTIONS (6)
  - Faeces discoloured [Not Recovered/Not Resolved]
  - Abdominal distension [Not Recovered/Not Resolved]
  - Diarrhoea [Recovering/Resolving]
  - Clostridium difficile infection [Not Recovered/Not Resolved]
  - Asthenia [Recovering/Resolving]
  - Abdominal pain [Recovering/Resolving]
